FAERS Safety Report 7179355-3 (Version None)
Quarter: 2010Q4

REPORT INFORMATION
  Report Type: 
  Country: None (occurrence: None)
  Receive Date: 20101221
  Receipt Date: 20101208
  Transmission Date: 20110411
  Serious: Yes (Disabling, Other)
  Sender: FDA-Public Use
  Company Number: PHHY2010JP54268

PATIENT
  Sex: Male
  Weight: 63 kg

DRUGS (9)
  1. ALISKIREN/AMOLODIPINE BESYLATE/HYDROCHLOROTHIAZIDE [Suspect]
     Dosage: 150 MG, DAILY
     Route: 048
     Dates: start: 20091127, end: 20100222
  2. CALBLOCK [Concomitant]
     Indication: HYPERTENSION
     Dosage: 16 MG
     Route: 048
     Dates: start: 20090901
  3. TENORMIN [Concomitant]
     Indication: HYPERTENSION
     Dosage: 50 MG
     Route: 048
     Dates: start: 20090901
  4. BLOPRESS [Concomitant]
     Indication: HYPERTENSION
     Dosage: 8 MG
     Route: 048
     Dates: start: 20090901, end: 20091126
  5. ACTOS [Concomitant]
     Dosage: 15 MG
     Route: 048
     Dates: start: 20090901
  6. BASEN [Concomitant]
     Dosage: 0.9 MG
     Route: 048
     Dates: start: 20090901
  7. PARIET [Concomitant]
     Dosage: 20 MG
     Route: 048
     Dates: start: 20091024
  8. MUCOSTA [Concomitant]
     Dosage: 300 MG
     Route: 048
     Dates: start: 20090901
  9. ESPO [Concomitant]
     Dosage: 6000 IU
     Route: 058
     Dates: start: 20090901

REACTIONS (1)
  - RENAL IMPAIRMENT [None]
